FAERS Safety Report 15891772 (Version 1)
Quarter: 2019Q1

REPORT INFORMATION
  Report Type: Spontaneous
  Country: AR (occurrence: AR)
  Receive Date: 20190130
  Receipt Date: 20190130
  Transmission Date: 20190417
  Serious: Yes (Death, Hospitalization)
  Sender: FDA-Public Use
  Company Number: AR-INCYTE CORPORATION-2019IN000551

PATIENT

DRUGS (2)
  1. ERYTHROPOIETIN [Concomitant]
     Active Substance: ERYTHROPOIETIN
     Indication: ANAEMIA
     Dosage: UNK
     Route: 065
  2. JAKAVI [Suspect]
     Active Substance: RUXOLITINIB
     Indication: MYELOFIBROSIS
     Dosage: 5 MG, BID (EVERY 12 HOURS)
     Route: 065
     Dates: start: 20170901

REACTIONS (3)
  - Platelet aggregation decreased [Not Recovered/Not Resolved]
  - Gastrointestinal haemorrhage [Fatal]
  - Platelet adhesiveness decreased [Not Recovered/Not Resolved]

NARRATIVE: CASE EVENT DATE: 20181130
